FAERS Safety Report 9590696 (Version 1)
Quarter: 2013Q4

REPORT INFORMATION
  Report Type: Spontaneous
  Country: US (occurrence: US)
  Receive Date: 20131003
  Receipt Date: 20131003
  Transmission Date: 20140711
  Serious: No
  Sender: FDA-Public Use
  Company Number: US-AMGEN-USASP2012078685

PATIENT
  Age: 26 Year
  Sex: Female

DRUGS (2)
  1. ENBREL [Suspect]
     Indication: ANKYLOSING SPONDYLITIS
     Dosage: 50 MG, QWK
     Dates: start: 20121128
  2. METHOTREXATE [Concomitant]
     Dosage: 7 TABS, 17.5 MG PER WEEK SINCE 12 YEARS OLD

REACTIONS (2)
  - Fatigue [Not Recovered/Not Resolved]
  - Feeling of relaxation [Not Recovered/Not Resolved]
